FAERS Safety Report 12679377 (Version 1)
Quarter: 2016Q3

REPORT INFORMATION
  Report Type: Spontaneous
  Country: BR (occurrence: BR)
  Receive Date: 20160824
  Receipt Date: 20160824
  Transmission Date: 20161109
  Serious: Yes (Death, Hospitalization, Other)
  Sender: FDA-Public Use
  Company Number: BR-ALEXION PHARMACEUTICALS INC-A201505595

PATIENT
  Age: 36 Year
  Sex: Female
  Weight: 60 kg

DRUGS (2)
  1. SOLIRIS [Suspect]
     Active Substance: ECULIZUMAB
     Indication: HAEMOLYTIC URAEMIC SYNDROME
     Dosage: 900 MG, QW
     Route: 042
     Dates: start: 20110722
  2. ROCEPHIN [Concomitant]
     Active Substance: CEFTRIAXONE SODIUM
     Indication: MENINGOCOCCAL INFECTION
     Dosage: 500 MG, UNK
     Route: 042
     Dates: start: 20150722

REACTIONS (8)
  - Blood lactate dehydrogenase increased [Unknown]
  - Thrombocytopenia [Unknown]
  - Exposure during pregnancy [Recovered/Resolved]
  - Cardio-respiratory arrest [Fatal]
  - Confusional state [Unknown]
  - Diarrhoea [Unknown]
  - Renal impairment [Unknown]
  - Vomiting [Unknown]

NARRATIVE: CASE EVENT DATE: 20150725
